FAERS Safety Report 5951040-2 (Version None)
Quarter: 2008Q4

REPORT INFORMATION
  Report Type: 
  Country: None (occurrence: None)
  Receive Date: 20081112
  Receipt Date: 20081103
  Transmission Date: 20090506
  Serious: Yes (Other)
  Sender: FDA-Public Use
  Company Number: UG-GILEAD-2006-0009217

PATIENT
  Sex: Male

DRUGS (2)
  1. TENOFOVIR DISOPROXIL FUMARATE [Suspect]
     Indication: HIV INFECTION
     Dates: start: 20031103, end: 20060123
  2. COMBIVIR [Concomitant]
     Indication: HIV INFECTION
     Dates: start: 20031103, end: 20060123

REACTIONS (1)
  - NEPHRITIS [None]
